FAERS Safety Report 24616908 (Version 1)
Quarter: 2024Q4

REPORT INFORMATION
  Report Type: Other
  Country: CA (occurrence: CA)
  Receive Date: 20241114
  Receipt Date: 20241114
  Transmission Date: 20250115
  Serious: Yes (Hospitalization)
  Sender: APOTEX
  Company Number: CA-APOTEX-2024AP017440

PATIENT
  Age: 68 Year
  Sex: Female

DRUGS (1)
  1. PREGABALIN [Suspect]
     Active Substance: PREGABALIN
     Indication: Cough
     Dosage: 75 MILLIGRAM, BID
     Route: 048

REACTIONS (1)
  - Superficial vein thrombosis [Recovered/Resolved]
